FAERS Safety Report 24583821 (Version 2)
Quarter: 2024Q4

REPORT INFORMATION
  Report Type: Spontaneous
  Country: US (occurrence: US)
  Receive Date: 20241106
  Receipt Date: 20241107
  Transmission Date: 20250115
  Serious: Yes (Hospitalization)
  Sender: JOHNSON AND JOHNSON
  Company Number: US-JNJFOC-20241077452

PATIENT
  Age: 57 Year
  Sex: Male

DRUGS (3)
  1. CARVYKTI [Suspect]
     Active Substance: CILTACABTAGENE AUTOLEUCEL
     Indication: Product used for unknown indication
     Route: 065
  2. LEVAQUIN [Concomitant]
     Active Substance: LEVOFLOXACIN
     Indication: Product used for unknown indication
     Route: 065
  3. CEPHALIN [CEFALEXIN] [Concomitant]
     Indication: Product used for unknown indication
     Route: 065

REACTIONS (5)
  - Haematological infection [Unknown]
  - Cellulitis [Unknown]
  - Vitreous floaters [Unknown]
  - Vision blurred [Unknown]
  - Platelet count decreased [Unknown]

NARRATIVE: CASE EVENT DATE: 20241027
